FAERS Safety Report 9296229 (Version 2)
Quarter: 2013Q3

REPORT INFORMATION
  Report Type: Report from Study
  Country: KR (occurrence: KR)
  Receive Date: 20130517
  Receipt Date: 20130730
  Transmission Date: 20140515
  Serious: Yes (Hospitalization)
  Sender: FDA-Public Use
  Company Number: KR-GLAXOSMITHKLINE-B0891630A

PATIENT
  Age: 77 Year
  Sex: Female
  Weight: 63 kg

DRUGS (7)
  1. VOTRIENT [Suspect]
     Indication: RENAL CELL CARCINOMA
     Dosage: 400MG TWICE PER DAY
     Route: 048
     Dates: start: 20121010, end: 20121011
  2. MORPHINE [Concomitant]
     Indication: PAIN
     Dosage: 10MG PER DAY
     Route: 042
     Dates: start: 20121112, end: 20121113
  3. AMITRIPTYLINE HCL [Concomitant]
     Indication: NOCTURIA
     Dosage: 10MG PER DAY
     Route: 042
     Dates: start: 20121112, end: 20121112
  4. FENTANYL [Concomitant]
     Indication: PAIN
     Dates: start: 20121115
  5. ATORVASTATIN [Concomitant]
     Indication: HYPERLIPIDAEMIA
     Dosage: 10MG PER DAY
     Route: 048
     Dates: start: 20121112, end: 20121115
  6. REBAMIPIDE [Concomitant]
     Indication: GASTRITIS
     Dosage: 100MG TWICE PER DAY
     Route: 048
     Dates: start: 20121112, end: 20121115
  7. ULTRACET [Concomitant]
     Indication: PAIN
     Route: 048
     Dates: start: 20121112, end: 20121115

REACTIONS (1)
  - Hypocalcaemia [Recovered/Resolved with Sequelae]
